FAERS Safety Report 4931433-2 (Version None)
Quarter: 2006Q1

REPORT INFORMATION
  Report Type: 
  Country: None (occurrence: None)
  Receive Date: 20060228
  Receipt Date: 20051104
  Transmission Date: 20060701
  Serious: Yes (Hospitalization, Other)
  Sender: FDA-Public Use
  Company Number: 2006022196

PATIENT
  Age: 26 Year
  Sex: Female

DRUGS (9)
  1. BEXTRA [Suspect]
     Indication: PAIN
     Dosage: 10 MG, AS NECESSARY
     Dates: start: 20040802, end: 20040801
  2. HYDROXYZINE HCL [Concomitant]
  3. ZANAFLEX [Concomitant]
  4. PHENOBARBITAL TAB [Concomitant]
  5. PAXIL CR [Concomitant]
  6. VIOXX [Concomitant]
  7. EFFEXOR XR [Concomitant]
  8. HYDROCODONE BITARTRATE + ACETAMINOPHEN [Concomitant]
  9. ADVIL [Concomitant]

REACTIONS (2)
  - ERYTHEMA MULTIFORME [None]
  - STEVENS-JOHNSON SYNDROME [None]
